FAERS Safety Report 19268201 (Version 1)
Quarter: 2021Q2

REPORT INFORMATION
  Report Type: Spontaneous
  Country: US (occurrence: US)
  Receive Date: 20210518
  Receipt Date: 20210518
  Transmission Date: 20210717
  Serious: No
  Sender: FDA-Public Use
  Company Number: US-APOTEX-2020AP022470

PATIENT
  Age: 86 Year
  Sex: Male

DRUGS (3)
  1. IMIQUIMOD. [Suspect]
     Active Substance: IMIQUIMOD
     Indication: SQUAMOUS CELL CARCINOMA
     Dosage: UNK (FIVE NIGHTS PER WEEK )
     Route: 061
  2. TRETINOIN. [Suspect]
     Active Substance: TRETINOIN
     Indication: SQUAMOUS CELL CARCINOMA
     Dosage: UNK (FIVE NIGHTS PER WEEK)
     Route: 061
  3. 5?FLUOROURACIL [FLUOROURACIL] [Suspect]
     Active Substance: FLUOROURACIL
     Indication: SQUAMOUS CELL CARCINOMA
     Dosage: UNK (FIVE NIGHTS PER WEEK)
     Route: 061

REACTIONS (2)
  - Pain [Unknown]
  - Off label use [Unknown]
